FAERS Safety Report 20350252 (Version 1)
Quarter: 2022Q1

REPORT INFORMATION
  Report Type: Spontaneous
  Country: US (occurrence: None)
  Receive Date: 20220119
  Receipt Date: 20220119
  Transmission Date: 20220424
  Serious: Yes (Other)
  Sender: FDA-Public Use
  Company Number: None

PATIENT
  Sex: Female

DRUGS (2)
  1. COSENTYX [Suspect]
     Active Substance: SECUKINUMAB
     Indication: Psoriatic arthropathy
     Dosage: 150MG/ML? INJECT 1 PEN UNDER THS SKIN (SUBCUTNEOUS INJECTION) ONCE MONTHLY?
     Route: 058
     Dates: start: 20210313
  2. COSENTYX [Suspect]
     Active Substance: SECUKINUMAB
     Dosage: OTHER QUANTITY : 1 PEN;?FREQUENCY : MONTHLY;?
     Route: 058

REACTIONS (4)
  - Surgery [None]
  - Therapy interrupted [None]
  - Pain [None]
  - Condition aggravated [None]
